FAERS Safety Report 6304495 (Version 5)
Quarter: 2019Q1

REPORT INFORMATION
  Report Type: Spontaneous
  Country: GR (occurrence: GR)
  Receive Date: 20070504
  Receipt Date: 20190201
  Transmission Date: 20190418
  Serious: Yes (Other)
  Sender: FDA-Public Use
  Company Number: GR-JNJFOC-20070405736

PATIENT
  Age: 45 Year
  Sex: Male

DRUGS (2)
  1. REMICADE [Suspect]
     Active Substance: INFLIXIMAB
     Indication: ANKYLOSING SPONDYLITIS
     Route: 042
     Dates: start: 200507
  2. ISONIAZIDE [Concomitant]
     Active Substance: ISONIAZID
     Dates: start: 200508, end: 200601

REACTIONS (1)
  - Mycobacterium marinum infection [Recovered/Resolved]

NARRATIVE: CASE EVENT DATE: 200509
